FAERS Safety Report 6215485-8 (Version None)
Quarter: 2009Q2

REPORT INFORMATION
  Report Type: 
  Country: None (occurrence: None)
  Receive Date: 20090603
  Receipt Date: 20090521
  Transmission Date: 20091009
  Serious: No
  Sender: FDA-Public Use
  Company Number: 2009-195458-NL

PATIENT
  Age: 53 Year
  Sex: Male

DRUGS (3)
  1. DEXAMETHASONE [Suspect]
     Indication: MULTIPLE MYELOMA
     Dosage: 20 MG
     Dates: start: 20090330, end: 20090406
  2. BORTEZOMIB [Suspect]
     Indication: MULTIPLE MYELOMA
     Dosage: 2.9 MG
     Route: 042
     Dates: start: 20090330, end: 20090406
  3. HEPARIN-FRACTIOM [Concomitant]

REACTIONS (6)
  - DIARRHOEA [None]
  - HERPES ZOSTER [None]
  - PYREXIA [None]
  - THROMBOCYTOPENIA [None]
  - TRANSPLANT [None]
  - WEIGHT DECREASED [None]
